FAERS Safety Report 14083080 (Version 10)
Quarter: 2019Q1

REPORT INFORMATION
  Report Type: Report from Study
  Country: CA (occurrence: CA)
  Receive Date: 20171012
  Receipt Date: 20190318
  Transmission Date: 20190417
  Serious: Yes (Hospitalization, Other)
  Sender: FDA-Public Use
  Company Number: CA-BRISTOL-MYERS SQUIBB COMPANY-BMS-2017-042803

PATIENT
  Age: 78 Year
  Sex: Female

DRUGS (2)
  1. ABATACEPT [Suspect]
     Active Substance: ABATACEPT
     Indication: RHEUMATOID ARTHRITIS
     Dosage: 750 MG, Q4WK
     Route: 042
     Dates: start: 20100802
  2. ABATACEPT [Suspect]
     Active Substance: ABATACEPT
     Indication: PRODUCT USED FOR UNKNOWN INDICATION
     Dosage: 500 MG, UNK
     Route: 042

REACTIONS (14)
  - Influenza [Recovering/Resolving]
  - Haemoptysis [Unknown]
  - Diarrhoea [Not Recovered/Not Resolved]
  - Nasopharyngitis [Recovering/Resolving]
  - Urinary tract infection [Recovering/Resolving]
  - Clostridium difficile infection [Not Recovered/Not Resolved]
  - Cystitis [Unknown]
  - Abnormal faeces [Unknown]
  - Malaise [Unknown]
  - Dizziness [Recovered/Resolved]
  - Productive cough [Unknown]
  - Rhinorrhoea [Unknown]
  - Cataract [Recovered/Resolved]
  - Pyrexia [Unknown]

NARRATIVE: CASE EVENT DATE: 201702
